FAERS Safety Report 18582734 (Version 2)
Quarter: 2020Q4

REPORT INFORMATION
  Report Type: Spontaneous
  Country: DE (occurrence: DE)
  Receive Date: 20201205
  Receipt Date: 20201217
  Transmission Date: 20210114
  Serious: Yes (Life-Threatening, Hospitalization, Other)
  Sender: FDA-Public Use
  Company Number: DE-JNJFOC-20201145249

PATIENT
  Sex: Female
  Weight: 100 kg

DRUGS (63)
  1. VALSARTAN HEXAL COMP [Suspect]
     Active Substance: HYDROCHLOROTHIAZIDE\VALSARTAN
     Indication: HYPERTENSION
     Dosage: UNK
     Route: 065
     Dates: start: 201410, end: 201704
  2. GRANOCYTE [Suspect]
     Active Substance: LENOGRASTIM
     Dosage: 1X 34, QD, 1X DAILY.
     Route: 065
     Dates: start: 20160120, end: 201601
  3. COTRIMOX [Concomitant]
     Active Substance: SULFAMETHOXAZOLE\TRIMETHOPRIM
     Indication: PNEUMONIA
     Dosage: 1 DF, BID, DF (ON (SATURDAY AND SUNDAY)
     Route: 065
  4. LYRICA [Concomitant]
     Active Substance: PREGABALIN
     Indication: PRODUCT USED FOR UNKNOWN INDICATION
     Dosage: 1X 75, 1X DAILY (EVENING), START DATE: ?? FEB/MAR 2016
     Route: 065
     Dates: start: 2016
  5. DIAZEPAM. [Concomitant]
     Active Substance: DIAZEPAM
     Indication: PRODUCT USED FOR UNKNOWN INDICATION
     Dosage: 1X 2.5, QD, 1X DAILY (MORNING
     Route: 065
  6. TRANXILIUM [Concomitant]
     Active Substance: CLORAZEPATE DIPOTASSIUM
     Dosage: 1X 15 MG, QD, 1X DAILY (EVENING OR NIGHT)
     Route: 065
  7. BACLOFEN. [Concomitant]
     Active Substance: BACLOFEN
     Dosage: 80 UG, QD, VIA PUMP
     Route: 065
     Dates: start: 2015
  8. DOXORUBICINE [DOXORUBICIN] [Suspect]
     Active Substance: DOXORUBICIN
     Indication: HODGKIN^S DISEASE
     Dosage: 25 MG/M2 (DAY 1 AND DAY 15)
     Route: 065
     Dates: start: 20151027, end: 201512
  9. CYCLOPHOSPHAMIDE. [Suspect]
     Active Substance: CYCLOPHOSPHAMIDE
     Indication: HODGKIN^S DISEASE
     Dosage: 750 MG/M2
     Route: 065
     Dates: start: 20160113
  10. VALSARTAN HEXAL COMP [Suspect]
     Active Substance: HYDROCHLOROTHIAZIDE\VALSARTAN
     Dosage: UNK
     Route: 065
     Dates: start: 20141014
  11. PARACETAMOL [Suspect]
     Active Substance: ACETAMINOPHEN
     Indication: PRODUCT USED FOR UNKNOWN INDICATION
     Dosage: UNK?ADDITIONAL INFO: ACETAMINOPHEN (PARACETAMOL)
     Route: 065
  12. LYRICA [Concomitant]
     Active Substance: PREGABALIN
     Dosage: 1X 150, 2X DAILY (MORNING AND EVENING)
     Route: 065
  13. LYRICA [Concomitant]
     Active Substance: PREGABALIN
     Dosage: 1X 150, 1X, STOP DATE: ?? FEB/MAR 2016
     Route: 065
     Dates: end: 2016
  14. VALSARTAN. [Concomitant]
     Active Substance: VALSARTAN
     Dosage: UNK
     Route: 065
     Dates: start: 20130124
  15. VALSACOR COMP [Concomitant]
     Active Substance: HYDROCHLOROTHIAZIDE\VALSARTAN
     Dosage: UNK
     Route: 065
     Dates: start: 20170411
  16. MOVICOL [Concomitant]
     Active Substance: POLYETHYLENE GLYCOL 3350\POTASSIUM CHLORIDE\SODIUM BICARBONATE\SODIUM CHLORIDE
     Dosage: 1 DF, SACHET, 1X IF NEEDED
     Route: 065
  17. BACLOFEN. [Concomitant]
     Active Substance: BACLOFEN
     Indication: PRODUCT USED FOR UNKNOWN INDICATION
     Dosage: 80 UG, QD, VIA PUMP
     Route: 065
     Dates: start: 2015
  18. PREDNISOLONE. [Suspect]
     Active Substance: PREDNISOLONE
     Indication: HODGKIN^S DISEASE
     Dosage: 40 MG MG/M2 (80 MG), DAY 1 - 14, DAILY
     Route: 065
     Dates: start: 20160113, end: 20160126
  19. BLEOMYCIN [Suspect]
     Active Substance: BLEOMYCIN SULFATE
     Indication: HODGKIN^S DISEASE
     Dosage: 10 MG/M2, DAY 8
     Route: 065
     Dates: start: 20160120
  20. GRANOCYTE [Suspect]
     Active Substance: LENOGRASTIM
     Indication: NEUTROPENIA
     Dosage: 1X 34, QD, 1X DAILY.
     Route: 065
     Dates: start: 20160203, end: 20160205
  21. DIAZEPAM. [Concomitant]
     Active Substance: DIAZEPAM
     Dosage: 1X 2.5, QD, 1X DAILY (EVENING)
     Route: 065
  22. TRANXILIUM [Concomitant]
     Active Substance: CLORAZEPATE DIPOTASSIUM
     Indication: PRODUCT USED FOR UNKNOWN INDICATION
     Dosage: 1X 10 MG, QD, 1X DAILY (MORNING)
     Route: 065
  23. TRANXILIUM [Concomitant]
     Active Substance: CLORAZEPATE DIPOTASSIUM
     Dosage: 1X 10 MG, BID, 2X DAILY (MORNING AND EVENING)
     Route: 065
  24. VALSARTAN HEXAL COMP [Suspect]
     Active Substance: HYDROCHLOROTHIAZIDE\VALSARTAN
     Dosage: UNK
     Route: 065
     Dates: start: 20150102
  25. VALSARTAN 1A PHARMA PLUS [Suspect]
     Active Substance: HYDROCHLOROTHIAZIDE\VALSARTAN
     Indication: HYPERTENSION
     Dosage: UNK
     Route: 065
     Dates: start: 20140707, end: 201410
  26. BACLOFEN. [Suspect]
     Active Substance: BACLOFEN
     Dosage: 200 UG, VIA PUMP
     Route: 065
  27. PANTOZOL [Concomitant]
     Active Substance: PANTOPRAZOLE SODIUM
     Indication: PRODUCT USED FOR UNKNOWN INDICATION
     Dosage: 1X 40, 1X DAILY (EVENING)
     Route: 065
  28. PANTOZOL [Concomitant]
     Active Substance: PANTOPRAZOLE SODIUM
     Dosage: 1X 40, 1X DAILY (MORNING)
     Route: 065
  29. VALSARTAN. [Concomitant]
     Active Substance: VALSARTAN
     Indication: HYPERTENSION
     Dosage: UNK
     Route: 065
     Dates: start: 201301
  30. VALSARTAN 1A PHARMA [Suspect]
     Active Substance: VALSARTAN
     Dosage: 80 MG
     Route: 065
     Dates: start: 20140707
  31. VALSARTAN HEXAL COMP [Suspect]
     Active Substance: HYDROCHLOROTHIAZIDE\VALSARTAN
     Dosage: UNK
     Route: 065
     Dates: start: 20150415
  32. ACETYLSALICYLIC ACID [Suspect]
     Active Substance: ASPIRIN
     Indication: PRODUCT USED FOR UNKNOWN INDICATION
     Dosage: UNK
     Route: 065
  33. ETOPOSIDE. [Suspect]
     Active Substance: ETOPOSIDE
     Indication: HODGKIN^S DISEASE
     Dosage: 100 MG/M2, DAY 1-3
     Route: 065
     Dates: start: 20160113
  34. VALSACOR COMP [Concomitant]
     Active Substance: HYDROCHLOROTHIAZIDE\VALSARTAN
     Indication: HYPERTENSION
     Dosage: UNK
     Route: 065
     Dates: start: 20170725
  35. MOVICOL [Concomitant]
     Active Substance: POLYETHYLENE GLYCOL 3350\POTASSIUM CHLORIDE\SODIUM BICARBONATE\SODIUM CHLORIDE
     Indication: PRODUCT USED FOR UNKNOWN INDICATION
     Dosage: UNK, SACHET, 1X DAILY (MORNING)
     Route: 065
  36. IBUPROFEN. [Suspect]
     Active Substance: IBUPROFEN
     Indication: PRODUCT USED FOR UNKNOWN INDICATION
     Dosage: UNK
     Route: 065
  37. VALSARTAN HEXAL COMP [Suspect]
     Active Substance: HYDROCHLOROTHIAZIDE\VALSARTAN
     Dosage: UNK
     Route: 065
     Dates: start: 20160804
  38. DICLOFENAC [Suspect]
     Active Substance: DICLOFENAC
     Indication: PRODUCT USED FOR UNKNOWN INDICATION
     Dosage: UNK
     Route: 065
  39. VINCRISTIN [Suspect]
     Active Substance: VINCRISTINE
     Indication: HODGKIN^S DISEASE
     Dosage: 2 MG ABSOLUTE, DAY 8
     Route: 065
     Dates: start: 20160120
  40. VINBLASTINE [Suspect]
     Active Substance: VINBLASTINE
     Indication: HODGKIN^S DISEASE
     Dosage: 6 MG/M2, (DAY 1 AND DAY 15)
     Route: 065
     Dates: start: 20151027, end: 201512
  41. PROCARBAZINE [Suspect]
     Active Substance: PROCARBAZINE
     Indication: HODGKIN^S DISEASE
     Dosage: 100 MG/M2 (200 MG), DAY 1-7, DAILY
     Route: 065
     Dates: start: 20190113, end: 20190119
  42. PALLADON [Concomitant]
     Active Substance: HYDROMORPHONE
     Indication: PRODUCT USED FOR UNKNOWN INDICATION
     Dosage: 1X 8MG, BID
     Route: 065
     Dates: end: 201511
  43. LYRICA [Concomitant]
     Active Substance: PREGABALIN
     Dosage: 2X 75, 1X DAILY (MORNING), START DATE: ?? FEB/MAR 2016
     Route: 065
     Dates: start: 2016
  44. LYRICA [Concomitant]
     Active Substance: PREGABALIN
     Dosage: 1X 150, 1X, STOP DATE: ?? FEB/MAR 2016
     Route: 065
     Dates: end: 2016
  45. MOTILIUM [Concomitant]
     Active Substance: DOMPERIDONE
     Indication: PRODUCT USED FOR UNKNOWN INDICATION
     Dosage: 1 DF,SACHET, 4X DAILY
     Route: 065
  46. VALSACOR COMP [Concomitant]
     Active Substance: HYDROCHLOROTHIAZIDE\VALSARTAN
     Dosage: UNK
     Route: 065
     Dates: start: 201704, end: 2017
  47. BACLOFEN. [Concomitant]
     Active Substance: BACLOFEN
     Dosage: 50 UG, QD, VIA PUMP
     Route: 065
     Dates: start: 2015, end: 2015
  48. VALSARTAN HEXAL COMP [Suspect]
     Active Substance: HYDROCHLOROTHIAZIDE\VALSARTAN
     Dosage: UNK
     Route: 065
     Dates: start: 20140707
  49. VALSARTAN HEXAL COMP [Suspect]
     Active Substance: HYDROCHLOROTHIAZIDE\VALSARTAN
     Dosage: UNK
     Route: 065
     Dates: start: 201407, end: 201407
  50. VALSARTAN HEXAL COMP [Suspect]
     Active Substance: HYDROCHLOROTHIAZIDE\VALSARTAN
     Dosage: UNK
     Route: 065
     Dates: start: 20150611
  51. BLEOMYCIN [Suspect]
     Active Substance: BLEOMYCIN SULFATE
     Dosage: 25 MG/M2 (DAY 1 AND DAY 15)
     Route: 065
     Dates: start: 20151027, end: 201512
  52. CITALOPRAM [Concomitant]
     Active Substance: CITALOPRAM HYDROBROMIDE
     Indication: PRODUCT USED FOR UNKNOWN INDICATION
     Dosage: 1X 20, 1X DAILY (MORNING)
     Route: 065
  53. BACLOFEN. [Concomitant]
     Active Substance: BACLOFEN
     Dosage: 80 UG, QD, VIA PUMP
     Route: 065
     Dates: start: 2015
  54. BACLOFEN. [Concomitant]
     Active Substance: BACLOFEN
     Dosage: 200 UG, QD, VIA PUMP
     Route: 065
     Dates: start: 2015, end: 2015
  55. DOXORUBICINE [DOXORUBICIN] [Suspect]
     Active Substance: DOXORUBICIN
     Dosage: 25 MG/M2 (DAY 1)
     Route: 065
     Dates: start: 20160113
  56. NEULASTA [Suspect]
     Active Substance: PEGFILGRASTIM
     Indication: NEUTROPENIA
     Dosage: UNK
     Route: 058
     Dates: start: 20151212, end: 20151212
  57. VALSARTAN 1A PHARMA [Suspect]
     Active Substance: VALSARTAN
     Indication: HYPERTENSION
     Dosage: 160/ 12.5 MG
     Route: 065
     Dates: start: 201407, end: 201410
  58. VALSARTAN 1A PHARMA [Suspect]
     Active Substance: VALSARTAN
     Dosage: 80 UNK
     Route: 065
     Dates: start: 201407, end: 201410
  59. VALSARTAN HEXAL COMP [Suspect]
     Active Substance: HYDROCHLOROTHIAZIDE\VALSARTAN
     Dosage: UNK
     Route: 065
     Dates: start: 20170112
  60. VALSARTAN HEXAL COMP [Suspect]
     Active Substance: HYDROCHLOROTHIAZIDE\VALSARTAN
     Dosage: UNK
     Route: 065
     Dates: start: 20160427
  61. DACARBAZINE. [Suspect]
     Active Substance: DACARBAZINE
     Indication: HODGKIN^S DISEASE
     Dosage: 375 MG/M2, DAY 1 AND DAY 15
     Route: 065
     Dates: start: 20151027, end: 201512
  62. BACLOFEN. [Suspect]
     Active Substance: BACLOFEN
     Indication: PRODUCT USED FOR UNKNOWN INDICATION
     Dosage: 200 UG, VIA PUMP
     Route: 065
  63. MORPHINE [Concomitant]
     Active Substance: MORPHINE
     Indication: PAIN
     Dosage: UNK, VIA PUMP
     Route: 065

REACTIONS (44)
  - Hodgkin^s disease [Unknown]
  - Basal ganglion degeneration [Unknown]
  - Klebsiella infection [Unknown]
  - Neutropenia [Recovering/Resolving]
  - Hyperhidrosis [Unknown]
  - Fall [Unknown]
  - Hyperventilation [Unknown]
  - Uterine enlargement [Unknown]
  - Dyspnoea [Recovering/Resolving]
  - Hyperpyrexia [Unknown]
  - Vomiting [Recovering/Resolving]
  - Sleep disorder [Unknown]
  - Arthralgia [Unknown]
  - Pain [Recovering/Resolving]
  - Candida infection [Unknown]
  - Back pain [Recovering/Resolving]
  - Dysphagia [Unknown]
  - Obesity [Unknown]
  - Lung disorder [Unknown]
  - Drug abuse [Unknown]
  - Viral infection [Unknown]
  - Spinal pain [Unknown]
  - Urinary tract infection [Unknown]
  - Cough [Unknown]
  - Renal cyst [Unknown]
  - Dizziness [Unknown]
  - Pulmonary congestion [Unknown]
  - Tissue infiltration [Unknown]
  - Hypochromic anaemia [Unknown]
  - Inguinal hernia [Unknown]
  - Lymphadenopathy [Recovering/Resolving]
  - Hypothyroidism [Unknown]
  - Nausea [Recovering/Resolving]
  - Headache [Unknown]
  - Hepatic steatosis [Unknown]
  - Red blood cell sedimentation rate increased [Unknown]
  - Pneumonia [Unknown]
  - Pyrexia [Unknown]
  - Pain in extremity [Recovering/Resolving]
  - Splenomegaly [Unknown]
  - General physical health deterioration [Unknown]
  - Myalgia [Unknown]
  - Fall [Recovered/Resolved]
  - Drug hypersensitivity [Unknown]

NARRATIVE: CASE EVENT DATE: 20150914
